FAERS Safety Report 5227843-9 (Version None)
Quarter: 2007Q1

REPORT INFORMATION
  Report Type: 
  Country: None (occurrence: None)
  Receive Date: 20070202
  Receipt Date: 20070122
  Transmission Date: 20070707
  Serious: Yes (Hospitalization, Other)
  Sender: FDA-Public Use
  Company Number: PFIZER INC-2007005723

PATIENT
  Sex: Male

DRUGS (2)
  1. CELEBREX [Suspect]
     Route: 048
  2. VIOXX [Suspect]
     Route: 048
     Dates: start: 20000101

REACTIONS (2)
  - CEREBROVASCULAR ACCIDENT [None]
  - RETINAL VASCULAR OCCLUSION [None]
